FAERS Safety Report 5458666-3 (Version None)
Quarter: 2007Q3

REPORT INFORMATION
  Report Type: 
  Country: None (occurrence: None)
  Receive Date: 20070919
  Receipt Date: 20070419
  Transmission Date: 20080115
  Serious: No
  Sender: FDA-Public Use
  Company Number: US-ASTRAZENECA-2007UW07813

PATIENT
  Age: 57 Year
  Sex: Female
  Weight: 52.6 kg

DRUGS (2)
  1. SEROQUEL [Suspect]
     Indication: ANXIETY
     Dosage: ONE HALF OF 100 MG TABLET
     Route: 048
     Dates: start: 20070401
  2. GLUCOVANCE [Concomitant]

REACTIONS (4)
  - DRY MOUTH [None]
  - FEELING ABNORMAL [None]
  - FEELING JITTERY [None]
  - MUSCLE SPASMS [None]
